FAERS Safety Report 4669062-0 (Version None)
Quarter: 2005Q2

REPORT INFORMATION
  Report Type: 
  Country: None (occurrence: None)
  Receive Date: 20050519
  Receipt Date: 20050505
  Transmission Date: 20051028
  Serious: Yes (Life-Threatening, Hospitalization, Disabling)
  Sender: FDA-Public Use
  Company Number: APP200500239

PATIENT
  Age: 65 Year
  Sex: Male

DRUGS (11)
  1. DACARBAZINE [Suspect]
     Indication: MALIGNANT MELANOMA
     Dosage: 2340 MG (2340 MG, 1 IN 1 D), INTRAVENOUS
     Route: 042
     Dates: start: 20030107, end: 20030107
  2. GENASENSE [Suspect]
     Indication: MALIGNANT MELANOMA
     Dosage: 728 (728, 1 IN 1 D), INTRAVENOUS
     Route: 042
     Dates: start: 20030102, end: 20030107
  3. METFORMIN HCL [Concomitant]
  4. ASPIRIN (ACTYLSALICYLIC ACID) [Concomitant]
  5. ATENOLOL [Concomitant]
  6. QUINAPRIL HCL [Concomitant]
  7. ATORVASTATIN CALCIUM [Concomitant]
  8. TELMISARTAN (TELMISARTAN) [Concomitant]
  9. GLIPIZIDE [Concomitant]
  10. GABAPENTIN [Concomitant]
  11. OXYCODONE (OXYCODONE) [Concomitant]

REACTIONS (12)
  - BLOOD UREA INCREASED [None]
  - BRAIN OEDEMA [None]
  - CEREBRAL HAEMATOMA [None]
  - CEREBRAL HAEMORRHAGE [None]
  - DISEASE PROGRESSION [None]
  - FALL [None]
  - HEAD INJURY [None]
  - HYPERGLYCAEMIA [None]
  - METASTASES TO CENTRAL NERVOUS SYSTEM [None]
  - ORAL INTAKE REDUCED [None]
  - THROMBOCYTOPENIA [None]
  - WHITE BLOOD CELL COUNT DECREASED [None]
